FAERS Safety Report 8758678 (Version 1)
Quarter: 2012Q4

REPORT INFORMATION
  Report Type: 
  Country: US (occurrence: US)
  Receive Date: 20120829
  Receipt Date: 20120829
  Transmission Date: 20130627
  Serious: Yes (Hospitalization)
  Sender: FDA-Public Use
  Company Number: US-BAYER-2012-087728

PATIENT
  Age: 20 Year
  Sex: Female
  Weight: 59.86 kg

DRUGS (2)
  1. YAZ [Suspect]
     Indication: CONTRACEPTION
  2. DIFLUCAN [Concomitant]
     Indication: FUNGAL INFECTION
     Dosage: 150 mg, repeat in 3 days
     Route: 048
     Dates: start: 20090901

REACTIONS (1)
  - Pulmonary embolism [None]
